FAERS Safety Report 21224023 (Version 1)
Quarter: 2022Q3

REPORT INFORMATION
  Report Type: Spontaneous
  Country: US (occurrence: US)
  Receive Date: 20220817
  Receipt Date: 20220817
  Transmission Date: 20221026
  Serious: No
  Sender: FDA-Public Use
  Company Number: US-SA-2021MK000112

PATIENT
  Age: 19 Year
  Sex: Female
  Weight: 63.560 kg

DRUGS (4)
  1. AFREZZA [Suspect]
     Active Substance: INSULIN HUMAN
     Indication: Type 1 diabetes mellitus
     Dosage: 12 TO 18 UNITS
     Dates: start: 20210406
  2. AFREZZA [Suspect]
     Active Substance: INSULIN HUMAN
     Dosage: 12 TO 18 UNITS
     Dates: start: 20210406
  3. AFREZZA [Suspect]
     Active Substance: INSULIN HUMAN
     Dosage: 12 TO 18 UNITS
     Dates: start: 20210406
  4. BASAGLAR [Concomitant]
     Active Substance: INSULIN GLARGINE
     Indication: Type 1 diabetes mellitus
     Dates: start: 201909

REACTIONS (2)
  - Blood glucose increased [Unknown]
  - Drug ineffective [Unknown]

NARRATIVE: CASE EVENT DATE: 20210801
